FAERS Safety Report 8940786 (Version 1)
Quarter: 2012Q4

REPORT INFORMATION
  Report Type: 
  Country: JP (occurrence: JP)
  Receive Date: 20121203
  Receipt Date: 20121203
  Transmission Date: 20130627
  Serious: Yes (Hospitalization, Other)
  Sender: FDA-Public Use
  Company Number: JP-ACTELION-A-CH2012-75298

PATIENT
  Sex: Male

DRUGS (2)
  1. TRACLEER [Suspect]
     Indication: PULMONARY HYPERTENSION
     Route: 048
  2. BERAPROST [Concomitant]

REACTIONS (14)
  - Tracheomalacia [Unknown]
  - Bronchitis [Unknown]
  - Wheezing [Unknown]
  - Use of accessory respiratory muscles [Unknown]
  - Feeding disorder [Unknown]
  - Oxygen saturation decreased [Unknown]
  - Convulsion neonatal [Unknown]
  - Atelectasis [Unknown]
  - Stent placement [Unknown]
  - Weaning failure [Unknown]
  - Atrial septal defect repair [Unknown]
  - Infantile apnoeic attack [Unknown]
  - Pulmonary hypertension [Unknown]
  - Bronchoscopy [Unknown]
